FAERS Safety Report 7466061-0 (Version None)
Quarter: 2011Q2

REPORT INFORMATION
  Report Type: 
  Country: None (occurrence: None)
  Receive Date: 20110509
  Receipt Date: 20110330
  Transmission Date: 20111010
  Serious: Yes (Hospitalization)
  Sender: FDA-Public Use
  Company Number: US-ALEXION-A201000464

PATIENT
  Sex: Female
  Weight: 94 kg

DRUGS (2)
  1. LOVENOX [Suspect]
  2. SOLIRIS [Suspect]
     Indication: PAROXYSMAL NOCTURNAL HAEMOGLOBINURIA
     Dosage: 900 MG, Q2W
     Route: 042
     Dates: start: 20090101

REACTIONS (6)
  - PELVIC ABSCESS [None]
  - PELVIC ADHESIONS [None]
  - FACTOR X DEFICIENCY [None]
  - ENDOMETRIAL HYPERPLASIA [None]
  - OVARIAN NEOPLASM [None]
  - VAGINAL HAEMORRHAGE [None]
